FAERS Safety Report 16505665 (Version 6)
Quarter: 2020Q3

REPORT INFORMATION
  Report Type: Spontaneous
  Country: US (occurrence: US)
  Receive Date: 20190701
  Receipt Date: 20200810
  Transmission Date: 20201102
  Serious: Yes (Other)
  Sender: FDA-Public Use
  Company Number: US-SA-2019SA176628

PATIENT

DRUGS (25)
  1. LIDOCAINE. [Concomitant]
     Active Substance: LIDOCAINE
  2. MULTIPLE VITAMINS [Concomitant]
     Active Substance: VITAMINS
  3. CUVITRU [Concomitant]
     Active Substance: HUMAN IMMUNOGLOBULIN G
  4. SPIRIVA RESPIMAT [Concomitant]
     Active Substance: TIOTROPIUM BROMIDE
     Route: 055
  5. NUCALA [Concomitant]
     Active Substance: MEPOLIZUMAB
     Dosage: VIAL
  6. ACCOLATE [Concomitant]
     Active Substance: ZAFIRLUKAST
  7. SYNTHROID [Concomitant]
     Active Substance: LEVOTHYROXINE SODIUM
  8. CYMBALTA [Concomitant]
     Active Substance: DULOXETINE HYDROCHLORIDE
  9. DUPIXENT [Suspect]
     Active Substance: DUPILUMAB
     Indication: ASTHMA
     Dosage: 300 MG, QOW
     Route: 058
     Dates: start: 2019
  10. VITAMIN D3 [Concomitant]
     Active Substance: CHOLECALCIFEROL
  11. PEPCID [Concomitant]
     Active Substance: FAMOTIDINE
  12. ZOLOFT [Concomitant]
     Active Substance: SERTRALINE HYDROCHLORIDE
  13. ACETAMINOPHEN. [Concomitant]
     Active Substance: ACETAMINOPHEN
  14. CALCIUM + D3 [CALCIUM;COLECALCIFEROL] [Concomitant]
     Dosage: 600 MG? 500 TABLET
  15. CLONAZEPAM. [Concomitant]
     Active Substance: CLONAZEPAM
  16. LYRICA [Concomitant]
     Active Substance: PREGABALIN
  17. ZYRTEC [Concomitant]
     Active Substance: CETIRIZINE HYDROCHLORIDE
  18. DILAUDID [Concomitant]
     Active Substance: HYDROMORPHONE HYDROCHLORIDE
  19. METHOTREXATE. [Concomitant]
     Active Substance: METHOTREXATE
  20. NEXIUM I.V. [Concomitant]
     Active Substance: ESOMEPRAZOLE SODIUM
  21. EPINEPHRINE. [Concomitant]
     Active Substance: EPINEPHRINE
  22. DIPHENHYDRAMINE. [Concomitant]
     Active Substance: DIPHENHYDRAMINE
  23. GAMUNEX [Concomitant]
     Active Substance: HUMAN IMMUNOGLOBULIN G
  24. ZOFRAN [Concomitant]
     Active Substance: ONDANSETRON HYDROCHLORIDE
  25. XARELTO [Concomitant]
     Active Substance: RIVAROXABAN

REACTIONS (5)
  - Selective IgG subclass deficiency [Unknown]
  - Headache [Unknown]
  - Incorrect dose administered [Unknown]
  - Osteoarthritis [Unknown]
  - Asthma [Recovered/Resolved]

NARRATIVE: CASE EVENT DATE: 2019
